FAERS Safety Report 12764929 (Version 1)
Quarter: 2016Q3

REPORT INFORMATION
  Report Type: Other
  Country: ES (occurrence: ES)
  Receive Date: 20160921
  Receipt Date: 20160921
  Transmission Date: 20161109
  Serious: Yes (Other)
  Sender: FDA-Public Use
  Company Number: ES-DEXPHARM-20161942

PATIENT
  Age: 78 Year
  Sex: Male

DRUGS (6)
  1. ENALAPRIL [Concomitant]
     Active Substance: ENALAPRIL
  2. SIMVASTATIN. [Interacting]
     Active Substance: SIMVASTATIN
  3. CARBOPLATIN AND PACLITAXEL [Interacting]
     Active Substance: CARBOPLATIN\PACLITAXEL
  4. ASPIRIN. [Concomitant]
     Active Substance: ASPIRIN
  5. OMEPRAZOLE. [Suspect]
     Active Substance: OMEPRAZOLE
  6. HERBAL NOS [Interacting]
     Active Substance: HERBALS
     Indication: OROPHARYNGEAL PAIN

REACTIONS (3)
  - Hepatotoxicity [None]
  - Drug interaction [Recovered/Resolved]
  - Lung adenocarcinoma [None]
